FAERS Safety Report 10682129 (Version 1)
Quarter: 2014Q4

REPORT INFORMATION
  Report Type: Spontaneous
  Country: US (occurrence: None)
  Receive Date: 20141229
  Receipt Date: 20141229
  Transmission Date: 20150529
  Serious: No
  Sender: FDA-Public Use
  Company Number: None

PATIENT
  Age: 56 Year
  Sex: Female
  Weight: 76.2 kg

DRUGS (1)
  1. ENBREL [Suspect]
     Active Substance: ETANERCEPT
     Indication: RHEUMATOID ARTHRITIS
     Dosage: 1 INJECTION PER WEEK 1 PER WEEK INTO THE MUSCLE
     Dates: start: 20141030

REACTIONS (2)
  - Injection site pain [None]
  - Burning sensation [None]

NARRATIVE: CASE EVENT DATE: 20141030
